FAERS Safety Report 15307257 (Version 1)
Quarter: 2018Q4

REPORT INFORMATION
  Report Type: Spontaneous
  Country: ZA (occurrence: ZA)
  Receive Date: 20180822
  Receipt Date: 20180822
  Transmission Date: 20190204
  Serious: Yes (Other)
  Sender: FDA-Public Use
  Company Number: ZA-PFIZER INC-2018337033

PATIENT
  Age: 60 Year
  Sex: Female

DRUGS (11)
  1. ASPAVOR [Suspect]
     Active Substance: ATORVASTATIN
     Dosage: 40 MG, UNK
  2. MACRODANTIN [Suspect]
     Active Substance: NITROFURANTOIN
     Dosage: 100 MG, UNK
  3. CLOPIWIN [Suspect]
     Active Substance: CLOPIDOGREL BISULFATE
     Dosage: 75 MG, UNK
  4. BETMIGA [Suspect]
     Active Substance: MIRABEGRON
     Dosage: 50 MG, UNK
  5. LYRICA [Suspect]
     Active Substance: PREGABALIN
     Dosage: 150 MG, UNK
  6. DORMICUM [MIDAZOLAM] [Suspect]
     Active Substance: MIDAZOLAM HYDROCHLORIDE
     Dosage: 7.5 MG, UNK
  7. TREPILINE [AMITRIPTYLINE] [Suspect]
     Active Substance: AMITRIPTYLINE
     Dosage: 25 MG, UNK
  8. DOPAQUEL [Suspect]
     Active Substance: QUETIAPINE
     Dosage: 25 MG, UNK
  9. XARELTO [Suspect]
     Active Substance: RIVAROXABAN
     Dosage: 20 MG, UNK
  10. MESTINON [Suspect]
     Active Substance: PYRIDOSTIGMINE BROMIDE
     Dosage: 60 MG, UNK
  11. LYRICA [Suspect]
     Active Substance: PREGABALIN
     Dosage: 75 MG, UNK

REACTIONS (1)
  - Cerebrovascular accident [Unknown]
